FAERS Safety Report 9537911 (Version 1)
Quarter: 2013Q3

REPORT INFORMATION
  Report Type: Spontaneous
  Country: IL (occurrence: IL)
  Receive Date: 20130919
  Receipt Date: 20130919
  Transmission Date: 20140515
  Serious: Yes (Other)
  Sender: FDA-Public Use
  Company Number: PHHY2013IL101504

PATIENT
  Age: 14 Year
  Sex: Female

DRUGS (1)
  1. TRIAMCINOLONE [Suspect]
     Indication: JUVENILE IDIOPATHIC ARTHRITIS
     Dosage: 40 MG, EACH IN BOTH KNEE

REACTIONS (5)
  - Juvenile idiopathic arthritis [Recovered/Resolved]
  - Dysmenorrhoea [Recovered/Resolved]
  - Acne cystic [Recovered/Resolved]
  - Skin striae [Recovered/Resolved]
  - Dermatitis acneiform [Recovered/Resolved]
